FAERS Safety Report 4846494-9 (Version None)
Quarter: 2005Q4

REPORT INFORMATION
  Report Type: 
  Country: None (occurrence: None)
  Receive Date: 20051201
  Receipt Date: 20051118
  Transmission Date: 20060501
  Serious: Yes (Other)
  Sender: FDA-Public Use
  Company Number: 2005158347

PATIENT
  Age: 65 Year
  Sex: Male

DRUGS (6)
  1. ATORVASTATIN CALCIUM [Suspect]
     Indication: LIPIDS INCREASED
     Dosage: 40 MG (40 MG, 1 IN 1 D), ORAL
     Route: 048
     Dates: start: 20020101
  2. WARFARIN (WARFARIN) [Concomitant]
  3. NICORANDIL (NICORANDIL) [Concomitant]
  4. ATENOLOL [Concomitant]
  5. IMIPRAMINE [Concomitant]
  6. ELOCON [Concomitant]

REACTIONS (3)
  - DRY SKIN [None]
  - EAR DISORDER [None]
  - SKIN EXFOLIATION [None]
